FAERS Safety Report 8552694-7 (Version None)
Quarter: 2012Q3

REPORT INFORMATION
  Report Type: 
  Country: None (occurrence: None)
  Receive Date: 20120731
  Receipt Date: 20120724
  Transmission Date: 20120928
  Serious: Yes (Hospitalization)
  Sender: FDA-Public Use
  Company Number: US-PFIZER INC-2012179992

PATIENT
  Sex: Female

DRUGS (2)
  1. VIAGRA [Suspect]
     Dosage: UNK
  2. AMBRISENTAN [Suspect]
     Dosage: 10 MG, UNK
     Route: 048
     Dates: start: 20120412

REACTIONS (4)
  - CHEST PAIN [None]
  - FALL [None]
  - DYSPNOEA [None]
  - DIZZINESS [None]
